FAERS Safety Report 11248508 (Version 1)
Quarter: 2015Q3

REPORT INFORMATION
  Report Type: Spontaneous
  Country: US (occurrence: US)
  Receive Date: 20150708
  Receipt Date: 20150708
  Transmission Date: 20151125
  Serious: No
  Sender: FDA-Public Use
  Company Number: US-ELI_LILLY_AND_COMPANY-US200912001986

PATIENT
  Sex: Female

DRUGS (2)
  1. PRENATAL VITAMINS                  /01549301/ [Concomitant]
     Active Substance: VITAMINS
     Dosage: UNK, UNKNOWN
     Route: 065
  2. PROZAC WEEKLY [Suspect]
     Active Substance: FLUOXETINE HYDROCHLORIDE
     Indication: DEPRESSION
     Dosage: 90 MG, WEEKLY (1/W)
     Route: 065
     Dates: start: 2004

REACTIONS (9)
  - Exposure during pregnancy [Unknown]
  - Decreased appetite [Unknown]
  - Umbilical cord around neck [Unknown]
  - Postpartum depression [Unknown]
  - Exposure during breast feeding [Unknown]
  - Withdrawal syndrome [Unknown]
  - Depression [Unknown]
  - Hypersomnia [Unknown]
  - Crying [Unknown]
